FAERS Safety Report 5512759-0 (Version None)
Quarter: 2007Q4

REPORT INFORMATION
  Report Type: 
  Country: None (occurrence: None)
  Receive Date: 20071112
  Receipt Date: 20071106
  Transmission Date: 20080405
  Serious: Yes (Life-Threatening, Hospitalization, Other)
  Sender: FDA-Public Use
  Company Number: FR-BRISTOL-MYERS SQUIBB COMPANY-13972179

PATIENT
  Age: 48 Year
  Sex: Male
  Weight: 130 kg

DRUGS (6)
  1. SUSTIVA [Interacting]
     Indication: ACQUIRED IMMUNODEFICIENCY SYNDROME
     Dates: start: 20010901
  2. ZERIT [Suspect]
     Indication: ACQUIRED IMMUNODEFICIENCY SYNDROME
     Dates: start: 20010801, end: 20010901
  3. KALETRA [Interacting]
     Indication: ACQUIRED IMMUNODEFICIENCY SYNDROME
     Dates: start: 20010901
  4. PREVISCAN [Interacting]
     Indication: THROMBOPHLEBITIS
     Dates: start: 20010901, end: 20011001
  5. VIRACEPT [Suspect]
     Indication: ACQUIRED IMMUNODEFICIENCY SYNDROME
     Dates: start: 20010801, end: 20010901
  6. EPIVIR [Suspect]
     Indication: ACQUIRED IMMUNODEFICIENCY SYNDROME
     Dates: start: 20010801, end: 20010901

REACTIONS (7)
  - DEEP VEIN THROMBOSIS [None]
  - DRUG INTERACTION [None]
  - LACTIC ACIDOSIS [None]
  - MITOCHONDRIAL CYTOPATHY [None]
  - OVERDOSE [None]
  - PELVIC VENOUS THROMBOSIS [None]
  - PULMONARY EMBOLISM [None]
